FAERS Safety Report 11909489 (Version 2)
Quarter: 2016Q1

REPORT INFORMATION
  Report Type: Spontaneous
  Country: US (occurrence: US)
  Receive Date: 20160112
  Receipt Date: 20160121
  Transmission Date: 20160526
  Serious: Yes (Other)
  Sender: FDA-Public Use
  Company Number: US-TEVA-617598USA

PATIENT
  Age: 29 Year
  Sex: Female

DRUGS (1)
  1. ZECUITY [Suspect]
     Active Substance: SUMATRIPTAN SUCCINATE
     Indication: HEADACHE
     Route: 062
     Dates: start: 20151209, end: 20151209

REACTIONS (5)
  - Drug ineffective [Unknown]
  - Application site exfoliation [Unknown]
  - Application site pain [Unknown]
  - Blister [Recovered/Resolved]
  - Application site burn [Unknown]

NARRATIVE: CASE EVENT DATE: 20151209
